FAERS Safety Report 18327730 (Version 1)
Quarter: 2020Q3

REPORT INFORMATION
  Report Type: Spontaneous
  Country: US (occurrence: US)
  Receive Date: 20200930
  Receipt Date: 20200930
  Transmission Date: 20201103
  Serious: No
  Sender: FDA-Public Use
  Company Number: US-STRIDES ARCOLAB LIMITED-2020SP007402

PATIENT

DRUGS (7)
  1. SODIUM CHLORIDE. [Concomitant]
     Active Substance: SODIUM CHLORIDE
     Indication: ANAESTHESIA
  2. SODIUM CHLORIDE. [Concomitant]
     Active Substance: SODIUM CHLORIDE
     Indication: ENDOVENOUS ABLATION
     Dosage: 1000 MILLILITER, SINGLE
     Route: 042
  3. SODIUM BICARBONATE. [Concomitant]
     Active Substance: SODIUM BICARBONATE
     Indication: ENDOVENOUS ABLATION
     Dosage: 10 MILLILITER, SINGLE
     Route: 042
  4. LIDOCAINE. [Suspect]
     Active Substance: LIDOCAINE
     Indication: ANAESTHESIA
  5. EPINEPHRINE. [Concomitant]
     Active Substance: EPINEPHRINE
     Indication: ANAESTHESIA
  6. EPINEPHRINE. [Concomitant]
     Active Substance: EPINEPHRINE
     Indication: ENDOVENOUS ABLATION
     Dosage: 0.5 MILLIGRAM PER LITRE, SINGLE
     Route: 042
  7. LIDOCAINE. [Suspect]
     Active Substance: LIDOCAINE
     Indication: ENDOVENOUS ABLATION
     Dosage: 35 MILLIGRAM/KILOGRAM, SINGLE
     Route: 042

REACTIONS (3)
  - Dizziness [Recovered/Resolved]
  - Toxicity to various agents [Unknown]
  - Hypoaesthesia oral [Recovered/Resolved]
